FAERS Safety Report 12768837 (Version 1)
Quarter: 2016Q3

REPORT INFORMATION
  Report Type: Spontaneous
  Country: US (occurrence: US)
  Receive Date: 20160921
  Receipt Date: 20160921
  Transmission Date: 20161109
  Serious: No
  Sender: FDA-Public Use
  Company Number: US-JAZZ-2016-US-010212

PATIENT
  Age: 69 Year
  Sex: Male

DRUGS (22)
  1. FLONASE [Concomitant]
     Active Substance: FLUTICASONE PROPIONATE
  2. FLUOCINONIDE. [Concomitant]
     Active Substance: FLUOCINONIDE
  3. LAMICTAL [Concomitant]
     Active Substance: LAMOTRIGINE
  4. TURMERIC [Concomitant]
     Active Substance: TURMERIC
  5. NUVIGIL [Concomitant]
     Active Substance: ARMODAFINIL
  6. RETIN-A [Concomitant]
     Active Substance: TRETINOIN
  7. VIIBRYD [Concomitant]
     Active Substance: VILAZODONE HYDROCHLORIDE
  8. XYREM [Suspect]
     Active Substance: SODIUM OXYBATE
     Dosage: DOSE ADJUSTMENTS
     Route: 048
  9. ZOVIRAX [Concomitant]
     Active Substance: ACYCLOVIR
  10. VYVANSE [Concomitant]
     Active Substance: LISDEXAMFETAMINE DIMESYLATE
  11. XYREM [Suspect]
     Active Substance: SODIUM OXYBATE
     Indication: NARCOLEPSY
     Dosage: 2.25 G, BID
     Route: 048
     Dates: start: 201208, end: 201209
  12. TERAZOSIN [Concomitant]
     Active Substance: TERAZOSIN\TERAZOSIN HYDROCHLORIDE
  13. HYDROCHLOROTHIAZIDE. [Concomitant]
     Active Substance: HYDROCHLOROTHIAZIDE
  14. HYDROCORTISONE. [Concomitant]
     Active Substance: HYDROCORTISONE
  15. LISINOPRIL. [Concomitant]
     Active Substance: LISINOPRIL
  16. CARBAMAZEPINE. [Concomitant]
     Active Substance: CARBAMAZEPINE
  17. WELLBUTRIN [Concomitant]
     Active Substance: BUPROPION HYDROCHLORIDE
  18. XYREM [Suspect]
     Active Substance: SODIUM OXYBATE
     Dosage: 4.5 G, BID
     Route: 048
     Dates: start: 201307
  19. EPINEPHRINE. [Concomitant]
     Active Substance: EPINEPHRINE
  20. OMEPRAZOLE. [Concomitant]
     Active Substance: OMEPRAZOLE
  21. PAXIL [Concomitant]
     Active Substance: PAROXETINE HYDROCHLORIDE
  22. SIMVASTATIN. [Concomitant]
     Active Substance: SIMVASTATIN

REACTIONS (2)
  - Malaise [Not Recovered/Not Resolved]
  - Dizziness [Not Recovered/Not Resolved]

NARRATIVE: CASE EVENT DATE: 20160601
